FAERS Safety Report 5240779-2 (Version None)
Quarter: 2007Q1

REPORT INFORMATION
  Report Type: 
  Country: None (occurrence: None)
  Receive Date: 20070219
  Receipt Date: 20070206
  Transmission Date: 20070707
  Serious: Yes (Other)
  Sender: FDA-Public Use
  Company Number: US-ELI_LILLY_AND_COMPANY-US200702001030

PATIENT
  Age: 52 Year
  Sex: Female

DRUGS (2)
  1. STRATTERA [Suspect]
     Indication: READING DISORDER
     Dosage: UNK, UNKNOWN
     Dates: start: 20070116
  2. STRATTERA [Suspect]
     Dosage: 80 MG, UNK
     Dates: start: 20060123

REACTIONS (7)
  - CHILLS [None]
  - DIZZINESS [None]
  - FEELING ABNORMAL [None]
  - INFLUENZA LIKE ILLNESS [None]
  - MALAISE [None]
  - SYNCOPE [None]
  - VOMITING [None]
